FAERS Safety Report 5106203-5 (Version None)
Quarter: 2006Q3

REPORT INFORMATION
  Report Type: 
  Country: None (occurrence: None)
  Receive Date: 20060918
  Receipt Date: 20060913
  Transmission Date: 20061208
  Serious: Yes (Other)
  Sender: FDA-Public Use
  Company Number: ES-BRISTOL-MYERS SQUIBB COMPANY-13507355

PATIENT

DRUGS (4)
  1. CAPTOPRIL AND HYDROCHLOROTHIAZIDE [Suspect]
     Dates: start: 19950101, end: 20050919
  2. DILUTOL [Suspect]
     Dates: start: 20050428, end: 20050919
  3. LORAZEPAM [Suspect]
     Dates: start: 20050919
  4. SERTRALINE [Suspect]

REACTIONS (1)
  - RENAL IMPAIRMENT [None]
